FAERS Safety Report 13563737 (Version 4)
Quarter: 2018Q3

REPORT INFORMATION
  Report Type: Spontaneous
  Country: AT (occurrence: AT)
  Receive Date: 20170519
  Receipt Date: 20180702
  Transmission Date: 20181010
  Serious: Yes (Other)
  Sender: FDA-Public Use
  Company Number: AT-PFIZER INC-2017215867

PATIENT
  Age: 71 Year
  Sex: Male

DRUGS (5)
  1. XALKORI [Suspect]
     Active Substance: CRIZOTINIB
     Indication: LUNG ADENOCARCINOMA
     Dosage: UNK
     Dates: start: 201407
  2. XALKORI [Suspect]
     Active Substance: CRIZOTINIB
     Dosage: 200MG, 2X/DAY
     Dates: start: 201801
  3. XALKORI [Suspect]
     Active Substance: CRIZOTINIB
     Dosage: 250 MG, DAILY
     Dates: start: 201804
  4. XALKORI [Suspect]
     Active Substance: CRIZOTINIB
     Dosage: 200MG, 2X/DAY FOR 6WEEKS
  5. XALKORI [Suspect]
     Active Substance: CRIZOTINIB
     Dosage: 200MG, 2X/DAY FOR 2WEEKS

REACTIONS (12)
  - Vitreous detachment [Recovering/Resolving]
  - Muscle atrophy [Unknown]
  - Constipation [Unknown]
  - Bradycardia [Recovering/Resolving]
  - Neutropenia [Unknown]
  - Staphylococcal infection [Unknown]
  - Oedema peripheral [Unknown]
  - Rash [Unknown]
  - Liver function test increased [Recovered/Resolved]
  - Blood testosterone decreased [Not Recovered/Not Resolved]
  - Pneumonia [Unknown]
  - Visual impairment [Recovered/Resolved]

NARRATIVE: CASE EVENT DATE: 201612
